FAERS Safety Report 5057791-9 (Version None)
Quarter: 2006Q3

REPORT INFORMATION
  Report Type: 
  Country: None (occurrence: None)
  Receive Date: 20060721
  Receipt Date: 20060220
  Transmission Date: 20061208
  Serious: No
  Sender: FDA-Public Use
  Company Number: US-GLAXOSMITHKLINE-A0594387A

PATIENT
  Age: 64 Year
  Sex: Female

DRUGS (3)
  1. AVANDIA [Suspect]
     Dosage: 4MG TWICE PER DAY
     Route: 048
  2. METFORMIN [Concomitant]
  3. BLOOD PRESSURE MEDICATION [Concomitant]
     Route: 048

REACTIONS (3)
  - HEART RATE INCREASED [None]
  - PRURITUS [None]
  - RASH [None]
